FAERS Safety Report 10880940 (Version 1)
Quarter: 2015Q1

REPORT INFORMATION
  Report Type: Spontaneous
  Country: TR (occurrence: None)
  Receive Date: 20150225
  Receipt Date: 20150225
  Transmission Date: 20150721
  Serious: Yes (Hospitalization)
  Sender: FDA-Public Use
  Company Number: UCM201502-000134

PATIENT
  Age: 25 Year
  Sex: Female

DRUGS (2)
  1. DIVALPROEX SODIUM (DIVALPROEX SODIUM) (DIVALPROEX SODIUM) [Suspect]
     Active Substance: DIVALPROEX SODIUM
     Indication: EPILEPSY
     Dosage: THERAPY DATES: 3 Y, 1500 MG, ONCE DAILY
  2. LEVETIRACETAM. [Concomitant]
     Active Substance: LEVETIRACETAM

REACTIONS (2)
  - Withdrawal syndrome [None]
  - Mania [None]
